FAERS Safety Report 23837638 (Version 2)
Quarter: 2024Q2

REPORT INFORMATION
  Report Type: Report from Study
  Country: US (occurrence: US)
  Receive Date: 20240509
  Receipt Date: 20240524
  Transmission Date: 20240716
  Serious: Yes (Other)
  Sender: FDA-Public Use
  Company Number: US-BRIAN CONNER SVP QUALITY AND CHIEF COMPLIANCE OFFICER-2024XER00038

PATIENT
  Sex: Female
  Weight: 62.132 kg

DRUGS (6)
  1. KEVEYIS [Suspect]
     Active Substance: DICHLORPHENAMIDE
     Indication: Paralysis
     Dosage: UNK
     Dates: start: 20181113
  2. KEVEYIS [Suspect]
     Active Substance: DICHLORPHENAMIDE
     Dosage: ONE TABLET (50 MG), 2X/DAY, (MORNING AND EVENING)
     Route: 048
     Dates: start: 20211023
  3. POTASSIUM [Concomitant]
     Active Substance: POTASSIUM
     Dosage: 10 MG, 1X/DAY
  4. UNSPECIFIED PRESCRIPTION ALLERGY MED [Concomitant]
  5. SPIRONOLACTONE [Concomitant]
     Active Substance: SPIRONOLACTONE
  6. AMITRIPTYLINE [Concomitant]
     Active Substance: AMITRIPTYLINE
     Indication: Migraine

REACTIONS (4)
  - Osteonecrosis [Not Recovered/Not Resolved]
  - Hypersensitivity [Not Recovered/Not Resolved]
  - Paralysis [Recovering/Resolving]
  - Paraesthesia [Recovering/Resolving]

NARRATIVE: CASE EVENT DATE: 20180101
